FAERS Safety Report 20827466 (Version 1)
Quarter: 2022Q2

REPORT INFORMATION
  Report Type: Spontaneous
  Country: US (occurrence: US)
  Receive Date: 20220513
  Receipt Date: 20220513
  Transmission Date: 20220720
  Serious: Yes (Other)
  Sender: FDA-Public Use
  Company Number: US-IBSA PHARMA INC.-2022IBS000133

PATIENT

DRUGS (1)
  1. TIROSINT [Suspect]
     Active Substance: LEVOTHYROXINE SODIUM
     Indication: Hypothyroidism
     Dosage: 75 ?G, UNK
     Dates: start: 2013

REACTIONS (10)
  - Mast cell activation syndrome [Unknown]
  - Raynaud^s phenomenon [Unknown]
  - Hypersensitivity [Recovered/Resolved]
  - Inflammation [Unknown]
  - Generalised oedema [Unknown]
  - Feeling abnormal [Unknown]
  - Dizziness [Unknown]
  - Dermatitis [Unknown]
  - Urticaria [Unknown]
  - Headache [Unknown]

NARRATIVE: CASE EVENT DATE: 20160101
